FAERS Safety Report 8288174-6 (Version None)
Quarter: 2012Q2

REPORT INFORMATION
  Report Type: 
  Country: None (occurrence: None)
  Receive Date: 20120416
  Receipt Date: 20120412
  Transmission Date: 20120825
  Serious: No
  Sender: FDA-Public Use
  Company Number: US-BAYER-2012-036371

PATIENT
  Age: 57 Year
  Sex: Female

DRUGS (3)
  1. AVELOX [Suspect]
     Indication: PYREXIA
     Dosage: UNK
     Dates: start: 20120407, end: 20120408
  2. AVELOX [Suspect]
     Indication: COUGH
  3. AVELOX [Suspect]
     Indication: PNEUMONIA

REACTIONS (4)
  - DYSGEUSIA [None]
  - PAIN [None]
  - SENSORY DISTURBANCE [None]
  - HYPERAESTHESIA [None]
